FAERS Safety Report 11086695 (Version 1)
Quarter: 2015Q2

REPORT INFORMATION
  Report Type: Spontaneous
  Country: PL (occurrence: PL)
  Receive Date: 20150504
  Receipt Date: 20150504
  Transmission Date: 20150821
  Serious: Yes (Other)
  Sender: FDA-Public Use
  Company Number: PL-TEVA-558853ISR

PATIENT
  Sex: Female
  Weight: 63 kg

DRUGS (2)
  1. FUROSEMIDUM [Concomitant]
     Active Substance: FUROSEMIDE
     Route: 042
     Dates: start: 20150227, end: 20150227
  2. CISPLATIN TEVA [Suspect]
     Active Substance: CISPLATIN
     Indication: OVARIAN CANCER
     Route: 041
     Dates: start: 20150227, end: 20150227

REACTIONS (3)
  - Chills [Recovered/Resolved]
  - Blood pressure increased [Recovered/Resolved]
  - Diarrhoea [Recovered/Resolved]
